FAERS Safety Report 8761499 (Version 2)
Quarter: 2012Q4

REPORT INFORMATION
  Report Type: 
  Country: AU (occurrence: AU)
  Receive Date: 20120830
  Receipt Date: 20120830
  Transmission Date: 20130627
  Serious: Yes (Disabling, Other)
  Sender: FDA-Public Use
  Company Number: AU-MERCK-1110USA04417

PATIENT

DRUGS (10)
  1. SINEMET [Suspect]
     Indication: PARKINSON^S DISEASE
     Dosage: 1.5 DF, q3h
     Route: 048
     Dates: start: 1996
  2. SINEMET [Suspect]
     Dosage: 1.5 tablets, 5 times a day
     Route: 048
     Dates: start: 201111
  3. SINEMET [Suspect]
     Dosage: 1 DF, q4h
     Route: 048
  4. SINEMET [Suspect]
     Dosage: 1 DF, q3h
     Route: 048
  5. BETALOC [Concomitant]
     Indication: CARDIAC DISORDER
     Dosage: 50 mg, qd
  6. MICARDIS [Concomitant]
     Indication: CARDIAC DISORDER
     Dosage: 40 mg, qd
  7. CRESTOR [Concomitant]
     Indication: HYPOTHYROIDISM
     Dosage: 10 mg, qd
  8. OROXINE [Concomitant]
     Indication: HYPOTHYROIDISM
     Dosage: 100 mg, qd
  9. ASTRIX [Concomitant]
     Indication: PROPHYLAXIS
     Dosage: UNK UNK, qd
  10. SIFROL [Concomitant]
     Indication: PARKINSON^S DISEASE
     Dosage: 3 mg, qd
     Route: 048
     Dates: start: 2008

REACTIONS (6)
  - Drug ineffective [Not Recovered/Not Resolved]
  - Overdose [Unknown]
  - Dyskinesia [Not Recovered/Not Resolved]
  - Tablet physical issue [Unknown]
  - Parkinson^s disease [Recovered/Resolved]
  - Wrong technique in drug usage process [Unknown]
